FAERS Safety Report 14784656 (Version 2)
Quarter: 2018Q3

REPORT INFORMATION
  Report Type: Spontaneous
  Country: DK (occurrence: DK)
  Receive Date: 20180420
  Receipt Date: 20180702
  Transmission Date: 20181010
  Serious: Yes (Other)
  Sender: FDA-Public Use
  Company Number: PHHY2017DK097262

PATIENT
  Sex: Female

DRUGS (15)
  1. METHOTREXATE. [Suspect]
     Active Substance: METHOTREXATE
     Dosage: REPEATED EVERY 4 WEEKS (ALTERNATIVELY EVERY 3 WEEKS)
     Route: 048
  2. ETOPOSIDE. [Suspect]
     Active Substance: ETOPOSIDE
     Dosage: 165 MG/M2, TIW, DAY 1?3
     Route: 042
     Dates: start: 2010
  3. CISPLATIN. [Suspect]
     Active Substance: CISPLATIN
     Dosage: DAY 1?5, Q3W
     Route: 042
  4. BLEOMYCIN [Suspect]
     Active Substance: BLEOMYCIN SULFATE
     Indication: GESTATIONAL TROPHOBLASTIC TUMOUR
     Dosage: DAY 2,9,16 Q3W
     Route: 042
  5. DACTINOMYCIN [Concomitant]
     Active Substance: DACTINOMYCIN
     Indication: PRODUCT USED FOR UNKNOWN INDICATION
     Dosage: 0.5 MG, UNK
     Route: 042
  6. METHOTREXATE. [Suspect]
     Active Substance: METHOTREXATE
     Indication: GESTATIONAL TROPHOBLASTIC TUMOUR
     Dosage: 2.5 MG, QID
     Route: 048
  7. METHOTREXATE. [Suspect]
     Active Substance: METHOTREXATE
     Dosage: 2.5 MG, QID FOR 5 DAYS
     Route: 048
  8. CISPLATIN. [Suspect]
     Active Substance: CISPLATIN
     Dosage: 50 MG/M2, TIW, DAY 1?2
     Route: 042
     Dates: start: 2010
  9. CISPLATIN. [Suspect]
     Active Substance: CISPLATIN
     Indication: GESTATIONAL TROPHOBLASTIC TUMOUR
     Dosage: 20 MG/M2, TIW, DAY 1?5
     Route: 042
  10. CALCIUM FOLINATE [Concomitant]
     Active Substance: LEUCOVORIN CALCIUM
     Indication: DRUG TOXICITY PROPHYLAXIS
     Dosage: 1 ML X 4 DAILY
     Route: 048
  11. DACTINOMYCIN [Concomitant]
     Active Substance: DACTINOMYCIN
     Indication: PRODUCT USED FOR UNKNOWN INDICATION
     Dosage: UNK , QMO
     Route: 042
  12. CISPLATIN. [Suspect]
     Active Substance: CISPLATIN
     Dosage: DAY 1?2
     Route: 042
  13. BLEOMYCIN [Suspect]
     Active Substance: BLEOMYCIN SULFATE
     Dosage: 30000 IU, TIW, DAY 2,9, AND 16
     Route: 042
  14. CALCIUM FOLINATE [Concomitant]
     Active Substance: LEUCOVORIN CALCIUM
     Dosage: 1 ML, 4 TIMES WEEKLY
     Route: 048
  15. ETOPOSIDE. [Suspect]
     Active Substance: ETOPOSIDE
     Indication: GESTATIONAL TROPHOBLASTIC TUMOUR
     Dosage: 100 MG/M2, TIW, DAY 1?5
     Route: 042

REACTIONS (4)
  - Respiratory symptom [Unknown]
  - Anaemia [Unknown]
  - Product use in unapproved indication [Unknown]
  - Drug resistance [Unknown]
